FAERS Safety Report 6245129-0 (Version None)
Quarter: 2009Q2

REPORT INFORMATION
  Report Type: 
  Country: None (occurrence: None)
  Receive Date: 20090619
  Receipt Date: 20090511
  Transmission Date: 20091009
  Serious: No
  Sender: FDA-Public Use
  Company Number: ALL1-2009-01336

PATIENT
  Age: 9 Year
  Sex: Male

DRUGS (2)
  1. VYVANSE [Suspect]
     Indication: ATTENTION DEFICIT/HYPERACTIVITY DISORDER
     Dosage: 50 MG, 1X/DAY;QD, ORAL;1X/DAY;QD950MG DISOLVED IN 5ML WATER GIVE 1ML), ORAL
     Route: 048
     Dates: start: 20090505, end: 20090505
  2. VYVANSE [Suspect]
     Indication: ATTENTION DEFICIT/HYPERACTIVITY DISORDER
     Dosage: 50 MG, 1X/DAY;QD, ORAL;1X/DAY;QD950MG DISOLVED IN 5ML WATER GIVE 1ML), ORAL
     Route: 048
     Dates: start: 20090506, end: 20090506

REACTIONS (10)
  - DISCOMFORT [None]
  - DIZZINESS [None]
  - DRUG PRESCRIBING ERROR [None]
  - NAUSEA [None]
  - PALLOR [None]
  - PALPITATIONS [None]
  - RESPIRATORY RATE INCREASED [None]
  - RESTLESSNESS [None]
  - TIC [None]
  - VISION BLURRED [None]
